FAERS Safety Report 18321068 (Version 1)
Quarter: 2020Q3

REPORT INFORMATION
  Report Type: Spontaneous
  Country: DE (occurrence: DE)
  Receive Date: 20200929
  Receipt Date: 20200929
  Transmission Date: 20201103
  Serious: Yes (Hospitalization)
  Sender: FDA-Public Use
  Company Number: DE-TEVA-2020-DE-1831767

PATIENT
  Age: 84 Year
  Sex: Male

DRUGS (13)
  1. PREGABALIN. [Concomitant]
     Active Substance: PREGABALIN
     Dosage: 25 MILLIGRAM DAILY; 25 MG, 0?1?0?0, CAPSULES
     Route: 048
  2. KALINOR?RETARD P 600MG [Concomitant]
     Dosage: 600 MILLIGRAM DAILY; 600 MG, 1?0?0?0, CAPSULES
     Route: 048
  3. PANTOPRAZOL [Concomitant]
     Active Substance: PANTOPRAZOLE SODIUM
     Dosage: 40 MILLIGRAM DAILY; 40 MG, 1?0?0?0, TABLET
     Route: 048
  4. ASS 100 [Concomitant]
     Active Substance: ASPIRIN
     Dosage: 100 MILLIGRAM DAILY; 100 MG, 0?1?0?0, TABLET
     Route: 048
  5. FREKA?CLYSS [Concomitant]
     Dosage: NEED,
     Route: 054
  6. BROMAZEPAM [Concomitant]
     Active Substance: BROMAZEPAM
     Dosage: 6 MILLIGRAM DAILY; 6 MG, 0?0?0?1, TABLET
     Route: 048
  7. TROSPIUM [Concomitant]
     Active Substance: TROSPIUM
     Dosage: 60 MILLIGRAM DAILY; 60 MG, 1?0?0?0, SUSTAINED?RELEASE CAPSULES
     Route: 048
  8. LACTULOSE. [Concomitant]
     Active Substance: LACTULOSE
     Dosage: 10 MILLIGRAM DAILY; 10 MG, 1?0?0?0, SYRUP
     Route: 048
  9. APIXABAN [Concomitant]
     Active Substance: APIXABAN
     Dosage: 5 MILLIGRAM DAILY; 2.5 MG, 1?0?1?0, TABLET
     Route: 048
  10. OPIPRAMOL [Concomitant]
     Active Substance: OPIPRAMOL
     Dosage: 2 DOSAGE FORMS DAILY; 50 MG, 0?0?2?0, TABLET
     Route: 048
  11. TORASEMID [Suspect]
     Active Substance: TORSEMIDE
     Dosage: 10 MILLIGRAM DAILY; 10 MG, 1?0?0?0, TABLET
     Route: 048
  12. MOVICOL [Concomitant]
     Active Substance: POLYETHYLENE GLYCOL 3350\POTASSIUM CHLORIDE\SODIUM BICARBONATE\SODIUM CHLORIDE
     Dosage: 2 DOSAGE FORMS DAILY; 1?0?1?0, POWDER, 1 DOSAGE FORMS
     Route: 048
  13. METAMIZOL [Concomitant]
     Active Substance: METAMIZOLE SODIUM
     Dosage: 500 MILLIGRAM DAILY; 500 MG, 1?0?0?0, TABLET
     Route: 048

REACTIONS (3)
  - Dehydration [Unknown]
  - Dysphagia [Unknown]
  - Product prescribing error [Unknown]

NARRATIVE: CASE EVENT DATE: 20200629
